FAERS Safety Report 6855115-5 (Version None)
Quarter: 2010Q3

REPORT INFORMATION
  Report Type: 
  Country: None (occurrence: None)
  Receive Date: 20100717
  Receipt Date: 20081125
  Transmission Date: 20110219
  Serious: Yes (Other)
  Sender: FDA-Public Use
  Company Number: US-PFIZER INC-2008000105

PATIENT
  Age: 61 Year
  Sex: Female

DRUGS (4)
  1. CHANTIX [Suspect]
     Route: 048
  2. GEODON [Concomitant]
  3. LAMICTAL [Concomitant]
  4. ESKALITH [Concomitant]

REACTIONS (3)
  - AFFECT LABILITY [None]
  - SUICIDAL BEHAVIOUR [None]
  - TEARFULNESS [None]
